FAERS Safety Report 9513872 (Version 1)
Quarter: 2013Q1

REPORT INFORMATION
  Report Type: Spontaneous
  Country: US (occurrence: None)
  Receive Date: 20130305
  Receipt Date: 20130305
  Transmission Date: 20140127
  Serious: Yes (Other)
  Sender: FDA-Public Use
  Company Number: 163-21880-12102619

PATIENT
  Age: 52 Year
  Sex: Female
  Weight: 73.94 kg

DRUGS (17)
  1. REVLIMID [Suspect]
     Indication: PLASMA CELL MYELOMA
     Dosage: 10 MG, 21 IN 21 D, PO
     Route: 048
     Dates: start: 20120217
  2. ALPHA LIPOIC ACID (THIOCTIC ACID) (UNKNOWN) [Concomitant]
  3. ASPIRIN (ACETYLSALICYLIC ACID) (UNKNOWN) (ACETYLSALICYLIC ACID) [Concomitant]
  4. CALCIUM (CALCIUM) (UNKNOWN) [Concomitant]
  5. DAPSONE (DAPSONE) (UNKNOWN) [Concomitant]
  6. DIAZEPAM (DIAZEPAM) (UNKNOWN) (DIAZEPAM) [Concomitant]
  7. DILAUDID (HYDROMORPHONE HYDROCHLORIDE) (UNKNOWN) [Concomitant]
  8. FOLIC ACID (FLOIC ACID) (UNKNOWN) [Concomitant]
  9. LIDODERM (LIDOCAINE) (UNKNOWN) [Concomitant]
  10. METAMUCIL (PSYLLIUM) (UNKNOWN) [Concomitant]
  11. MULTIVITAMINS (MULTIVITAMINS) (UNKNOWN) [Concomitant]
  12. OXYCODONE (OXYCODONE) (UNKNOWN) (OXYCODONE) [Concomitant]
  13. PRILOSEC (OMEPRAZOLE) (UNKNOWN) [Concomitant]
  14. PROCHLORPERAZINE (PROCHLORPERAZINE) (UNKNOWN)? [Concomitant]
  15. VITAMIN B (VITAMIN B) (UNKNOWN) [Concomitant]
  16. VITAMIN D (ERGOCALCIFEROL) (UNKNOWN) [Concomitant]
  17. ZOFRAN (ONDANSETRON HYDROCHLORIDE) (UNKNOWN) [Concomitant]

REACTIONS (1)
  - Fatigue [None]
